FAERS Safety Report 11303231 (Version 1)
Quarter: 2015Q3

REPORT INFORMATION
  Report Type: Spontaneous
  Country: JP (occurrence: JP)
  Receive Date: 20150723
  Receipt Date: 20150723
  Transmission Date: 20151125
  Serious: Yes (Death)
  Sender: FDA-Public Use
  Company Number: JP-MALLINCKRODT-T201503484

PATIENT
  Age: 56 Year
  Sex: Male
  Weight: 70 kg

DRUGS (9)
  1. METHADONE [Suspect]
     Active Substance: METHADONE HYDROCHLORIDE
     Indication: CANCER PAIN
     Dosage: 5 MG (15 MG DAILY DOSE)
     Route: 048
     Dates: start: 20150502, end: 20150508
  2. LYRICA [Concomitant]
     Active Substance: PREGABALIN
     Dosage: 75 MG
     Route: 048
     Dates: start: 20150402, end: 20150416
  3. MORPHINE HYDROCHLORIDE [Concomitant]
     Active Substance: MORPHINE HYDROCHLORIDE
     Dosage: 8 MG
     Route: 029
     Dates: start: 20150325, end: 20150409
  4. MORPHINE HYDROCHLORIDE [Concomitant]
     Active Substance: MORPHINE HYDROCHLORIDE
     Dosage: 16 MG
     Route: 029
     Dates: start: 20150420, end: 20150507
  5. CELECOX [Concomitant]
     Active Substance: CELECOXIB
     Dosage: 200 MG
     Route: 048
     Dates: start: 20150110, end: 20150516
  6. METHADONE [Suspect]
     Active Substance: METHADONE HYDROCHLORIDE
     Dosage: 10 MG (30 MG DAILY DOSE)
     Route: 048
     Dates: start: 20150509, end: 20150511
  7. MORPHINE HYDROCHLORIDE [Concomitant]
     Active Substance: MORPHINE HYDROCHLORIDE
     Dosage: 11 MG
     Route: 029
     Dates: start: 20150410, end: 20150419
  8. LYRICA [Concomitant]
     Active Substance: PREGABALIN
     Dosage: 150 MG
     Route: 048
     Dates: start: 20150417, end: 20150516
  9. MORPHINE HYDROCHLORIDE [Concomitant]
     Active Substance: MORPHINE HYDROCHLORIDE
     Dosage: 24 MG
     Route: 029
     Dates: start: 20150508, end: 20150516

REACTIONS (1)
  - Lung neoplasm malignant [Fatal]

NARRATIVE: CASE EVENT DATE: 20150516
